FAERS Safety Report 20486821 (Version 1)
Quarter: 2022Q1

REPORT INFORMATION
  Report Type: Spontaneous
  Country: CR (occurrence: CR)
  Receive Date: 20220217
  Receipt Date: 20220217
  Transmission Date: 20220423
  Serious: Yes (Other)
  Sender: FDA-Public Use
  Company Number: CR-PFIZER INC-2020153111

PATIENT
  Age: 54 Year
  Sex: Female

DRUGS (3)
  1. PRISTIQ EXTENDED-RELEASE [Suspect]
     Active Substance: DESVENLAFAXINE SUCCINATE
     Indication: Depression
     Dosage: 50 MG
     Dates: start: 2020
  2. PRISTIQ EXTENDED-RELEASE [Suspect]
     Active Substance: DESVENLAFAXINE SUCCINATE
     Dosage: 100 MG
  3. HYDROCHLOROTHIAZIDE\TELMISARTAN [Concomitant]
     Active Substance: HYDROCHLOROTHIAZIDE\TELMISARTAN
     Dosage: UNK

REACTIONS (11)
  - Drug dependence [Unknown]
  - Chest discomfort [Unknown]
  - Nausea [Unknown]
  - Dizziness [Unknown]
  - Feeling abnormal [Unknown]
  - Pyrexia [Unknown]
  - Discomfort [Unknown]
  - Dyspnoea [Unknown]
  - Intentional dose omission [Unknown]
  - Head discomfort [Unknown]
  - Drug ineffective [Unknown]
